FAERS Safety Report 8603567-2 (Version None)
Quarter: 2012Q3

REPORT INFORMATION
  Report Type: 
  Country: None (occurrence: None)
  Receive Date: 20120817
  Receipt Date: 20120815
  Transmission Date: 20120928
  Serious: Yes (Death)
  Sender: FDA-Public Use
  Company Number: PHHY2012ES070739

PATIENT
  Age: 68 Year
  Sex: Male

DRUGS (5)
  1. CYCLOPHOSPHAMIDE [Suspect]
     Indication: SPLENIC MARGINAL ZONE LYMPHOMA
  2. VINCRISTINE [Suspect]
     Indication: SPLENIC MARGINAL ZONE LYMPHOMA
  3. DOXORUBICIN HYDROCHLORIDE [Suspect]
     Indication: SPLENIC MARGINAL ZONE LYMPHOMA
  4. PREDNISONE TAB [Suspect]
     Indication: IMMUNOSUPPRESSION
  5. RITUXAN [Suspect]
     Indication: SPLENIC MARGINAL ZONE LYMPHOMA

REACTIONS (1)
  - HEPATITIS B [None]
